FAERS Safety Report 7512365 (Version 17)
Quarter: 2013Q4

REPORT INFORMATION
  Report Type: Spontaneous
  Country: GB (occurrence: GB)
  Receive Date: 20100730
  Receipt Date: 20131205
  Transmission Date: 20140711
  Serious: Yes (Death, Hospitalization, Other)
  Sender: FDA-Public Use
  Company Number: PHFR2010GB00678

PATIENT
  Sex: Male

DRUGS (8)
  1. CLOZARIL [Suspect]
     Indication: SCHIZOPHRENIA
     Dosage: 250 MG, QD
     Route: 048
     Dates: start: 20041112
  2. CLOZARIL [Suspect]
     Dosage: UNK
     Route: 048
     Dates: start: 20041112, end: 20101209
  3. CLOZARIL [Suspect]
     Dosage: UNK
     Route: 048
     Dates: start: 20110121
  4. CLOZARIL [Suspect]
     Dosage: UNK
     Route: 048
     Dates: start: 20110401
  5. SULPIRIDE [Concomitant]
     Indication: SCHIZOPHRENIA
     Dosage: 400 MG, UNK
     Route: 048
     Dates: start: 2008
  6. OMEPRAZOLE [Concomitant]
     Dosage: 40 MG, UNK
     Dates: start: 2009
  7. DOMPERIDONE [Concomitant]
     Dosage: UNK DF, UNK
     Dates: start: 2009
  8. IRON SUPPLEMENTS [Concomitant]
     Dosage: 400 MG, UNK
     Dates: start: 2009

REACTIONS (25)
  - Multi-organ failure [Fatal]
  - Oesophageal rupture [Fatal]
  - Hypophagia [Unknown]
  - Sepsis [Unknown]
  - Oesophageal stenosis [Unknown]
  - Gastrointestinal haemorrhage [Recovering/Resolving]
  - Haematemesis [Not Recovered/Not Resolved]
  - Anaemia [Not Recovered/Not Resolved]
  - Oesophageal perforation [Recovering/Resolving]
  - Pneumothorax [Recovered/Resolved]
  - General physical health deterioration [Not Recovered/Not Resolved]
  - Abnormal behaviour [Unknown]
  - Oxygen saturation decreased [Recovered/Resolved]
  - Dysphagia [Unknown]
  - Aspiration [Recovering/Resolving]
  - Vomiting [Not Recovered/Not Resolved]
  - Hypotension [Unknown]
  - Nausea [Not Recovered/Not Resolved]
  - Tachycardia [Unknown]
  - Decreased appetite [Not Recovered/Not Resolved]
  - Platelet count increased [Unknown]
  - Weight decreased [Not Recovered/Not Resolved]
  - Malaise [Unknown]
  - White blood cell count increased [Not Recovered/Not Resolved]
  - Neutrophil count increased [Not Recovered/Not Resolved]
